FAERS Safety Report 4799863-X (Version None)
Quarter: 2005Q4

REPORT INFORMATION
  Report Type: 
  Country: None (occurrence: None)
  Receive Date: 20051017
  Receipt Date: 20051003
  Transmission Date: 20060501
  Serious: Yes (Hospitalization)
  Sender: FDA-Public Use
  Company Number: US-BRISTOL-MYERS SQUIBB COMPANY-13130653

PATIENT
  Age: 83 Year
  Sex: Female

DRUGS (2)
  1. PERFLUTREN [Suspect]
     Indication: ECHOCARDIOGRAM
     Route: 042
  2. NORMAL SALINE [Concomitant]
     Indication: ECHOCARDIOGRAM
     Route: 042

REACTIONS (3)
  - ANAPHYLACTIC REACTION [None]
  - ATRIAL FIBRILLATION [None]
  - HAEMODYNAMIC INSTABILITY [None]
